FAERS Safety Report 5672200-4 (Version None)
Quarter: 2008Q2

REPORT INFORMATION
  Report Type: 
  Country: None (occurrence: None)
  Receive Date: 20080219
  Receipt Date: 20071218
  Transmission Date: 20081010
  Serious: No
  Sender: FDA-Public Use
  Company Number: TPA2007A02514

PATIENT
  Age: 80 Year
  Sex: Male
  Weight: 83.9154 kg

DRUGS (5)
  1. ROZEREM [Suspect]
  2. DILANTIN [Concomitant]
  3. LISINOPRIL [Concomitant]
  4. ELAVIL [Concomitant]
  5. PRILOSEC [Concomitant]

REACTIONS (1)
  - INSOMNIA [None]
